FAERS Safety Report 4633860-X (Version None)
Quarter: 2005Q2

REPORT INFORMATION
  Report Type: 
  Country: None (occurrence: None)
  Receive Date: 20050412
  Receipt Date: 20050412
  Transmission Date: 20051028
  Serious: No
  Sender: FDA-Public Use
  Company Number: None

PATIENT
  Sex: Female
  Weight: 59.42 kg

DRUGS (2)
  1. CISPLATIN [Suspect]
     Dosage: 100 MG/M2 ON DAYS 1 AND 22
     Dates: start: 20050214
  2. AFX-CB [Suspect]
     Dosage: 72 GY/FX FOR 6 WEEKS
     Dates: start: 20050214

REACTIONS (2)
  - FULL BLOOD COUNT DECREASED [None]
  - MUCOSAL INFLAMMATION [None]
